FAERS Safety Report 8962912 (Version 1)
Quarter: 2012Q4

REPORT INFORMATION
  Report Type: 
  Country: US (occurrence: US)
  Receive Date: 20121213
  Receipt Date: 20121213
  Transmission Date: 20130627
  Serious: Yes (Other)
  Sender: FDA-Public Use
  Company Number: US-GILEAD-2012-0065750

PATIENT
  Sex: Female

DRUGS (1)
  1. LETAIRIS [Suspect]
     Indication: CARDIAC SEPTAL DEFECT
     Dosage: 10 mg, QD
     Route: 048
     Dates: start: 20100617

REACTIONS (2)
  - Cardiac pacemaker insertion [Unknown]
  - Dyspnoea [Unknown]
